FAERS Safety Report 25726575 (Version 8)
Quarter: 2025Q4

REPORT INFORMATION
  Report Type: Report from Study
  Country: JP (occurrence: JP)
  Receive Date: 20250826
  Receipt Date: 20251119
  Transmission Date: 20260117
  Serious: Yes (Other)
  Sender: BridgeBio Pharma
  Company Number: JP-BRIDGEBIO-25JP001372

PATIENT

DRUGS (2)
  1. ACORAMIDIS [Suspect]
     Active Substance: ACORAMIDIS
     Indication: Cardiac amyloidosis
     Dosage: 800 MILLIGRAM, BID
     Route: 065
     Dates: start: 20250722, end: 20250805
  2. SENNOSIDES A AND B [Concomitant]
     Active Substance: SENNOSIDES A AND B
     Indication: Product used for unknown indication

REACTIONS (9)
  - Renal impairment [Recovering/Resolving]
  - Haemoptysis [Recovering/Resolving]
  - Blood pressure decreased [Recovered/Resolved]
  - Oedema peripheral [Not Recovered/Not Resolved]
  - Anaemia [Recovered/Resolved]
  - Weight decreased [Not Recovered/Not Resolved]
  - Arthralgia [Not Recovered/Not Resolved]
  - Back pain [Not Recovered/Not Resolved]
  - Malaise [Not Recovered/Not Resolved]

NARRATIVE: CASE EVENT DATE: 20250101
